FAERS Safety Report 10516807 (Version 2)
Quarter: 2014Q4

REPORT INFORMATION
  Report Type: Spontaneous
  Country: US (occurrence: US)
  Receive Date: 20141014
  Receipt Date: 20141028
  Transmission Date: 20150528
  Serious: Yes (Hospitalization)
  Sender: FDA-Public Use
  Company Number: US-BRISTOL-MYERS SQUIBB COMPANY-21486204

PATIENT
  Age: 51 Year
  Sex: Male
  Weight: 88.43 kg

DRUGS (1)
  1. ABILIFY [Suspect]
     Active Substance: ARIPIPRAZOLE
     Indication: BIPOLAR I DISORDER
     Dosage: 01SEP2014,02SEP2014.
     Route: 048

REACTIONS (3)
  - Confusional state [Unknown]
  - Suicide attempt [Unknown]
  - Ammonia increased [Unknown]

NARRATIVE: CASE EVENT DATE: 201409
